FAERS Safety Report 25316104 (Version 1)
Quarter: 2025Q2

REPORT INFORMATION
  Report Type: Spontaneous
  Country: US (occurrence: US)
  Receive Date: 20250515
  Receipt Date: 20250515
  Transmission Date: 20250717
  Serious: No
  Sender: RANBAXY
  Company Number: US-SUN PHARMACEUTICAL INDUSTRIES LTD-2024R1-464305

PATIENT
  Age: 65 Year
  Sex: Male
  Weight: 89.796 kg

DRUGS (2)
  1. ILUMYA [Suspect]
     Active Substance: TILDRAKIZUMAB-ASMN
     Indication: Psoriasis
     Route: 065
  2. LISINOPRIL [Concomitant]
     Active Substance: LISINOPRIL
     Indication: Blood pressure measurement

REACTIONS (8)
  - Influenza [Unknown]
  - Sinusitis [Unknown]
  - Oropharyngeal pain [Unknown]
  - Nasal congestion [Unknown]
  - Eye pruritus [Unknown]
  - Lacrimation increased [Unknown]
  - Rhinorrhoea [Unknown]
  - Sinus disorder [Unknown]

NARRATIVE: CASE EVENT DATE: 20240815
